FAERS Safety Report 13499553 (Version 1)
Quarter: 2017Q2

REPORT INFORMATION
  Report Type: Spontaneous
  Country: US (occurrence: US)
  Receive Date: 20170501
  Receipt Date: 20170501
  Transmission Date: 20170830
  Serious: Yes (Death, Other)
  Sender: FDA-Public Use
  Company Number: None

PATIENT
  Age: 73 Year
  Sex: Male
  Weight: 97.52 kg

DRUGS (12)
  1. XANAX [Concomitant]
     Active Substance: ALPRAZOLAM
  2. OXYCONTIN [Concomitant]
     Active Substance: OXYCODONE HYDROCHLORIDE
  3. LOW DOSE ASPIRIN [Concomitant]
     Active Substance: ASPIRIN
  4. SONATA [Concomitant]
     Active Substance: ZALEPLON
  5. QVAR [Concomitant]
     Active Substance: BECLOMETHASONE DIPROPIONATE
  6. ADVIL [Concomitant]
     Active Substance: IBUPROFEN
  7. LYRICA [Suspect]
     Active Substance: PREGABALIN
     Indication: DEMYELINATING POLYNEUROPATHY
     Dosage: ?          QUANTITY:3 (LA?E) ELM;?
     Route: 048
     Dates: start: 20161014, end: 20161117
  8. LYRICA [Suspect]
     Active Substance: PREGABALIN
     Indication: PAIN
     Dosage: ?          QUANTITY:3 (LA?E) ELM;?
     Route: 048
     Dates: start: 20161014, end: 20161117
  9. CRESTOR [Concomitant]
     Active Substance: ROSUVASTATIN CALCIUM
  10. BYSTOLIC [Concomitant]
     Active Substance: NEBIVOLOL HYDROCHLORIDE
  11. BENADRYL [Concomitant]
     Active Substance: DIPHENHYDRAMINE HYDROCHLORIDE
  12. LYRICA [Suspect]
     Active Substance: PREGABALIN
     Indication: PARAESTHESIA
     Dosage: ?          QUANTITY:3 (LA?E) ELM;?
     Route: 048
     Dates: start: 20161014, end: 20161117

REACTIONS (7)
  - Completed suicide [None]
  - Dysphagia [None]
  - Mental disorder [None]
  - Nausea [None]
  - Dysgeusia [None]
  - Dyspnoea [None]
  - Mental status changes [None]

NARRATIVE: CASE EVENT DATE: 20161117
